FAERS Safety Report 16891550 (Version 1)
Quarter: 2019Q4

REPORT INFORMATION
  Report Type: Spontaneous
  Country: US (occurrence: US)
  Receive Date: 20190812
  Receipt Date: 20190812
  Transmission Date: 20200122
  Serious: No
  Sender: FDA-Public Use
  Company Number: None

PATIENT

DRUGS (2)
  1. TRANEXAMIC ACID TRANEXAMIC ACID [Suspect]
     Active Substance: TRANEXAMIC ACID
  2. REGULAR INSULIN INSULIN REGULAR [Suspect]
     Active Substance: INSULIN NOS

REACTIONS (5)
  - Wrong product administered [None]
  - Product label confusion [None]
  - Product preparation error [None]
  - Product appearance confusion [None]
  - Drug monitoring procedure not performed [None]
